FAERS Safety Report 5314233-3 (Version None)
Quarter: 2007Q2

REPORT INFORMATION
  Report Type: 
  Country: None (occurrence: None)
  Receive Date: 20070501
  Receipt Date: 20070425
  Transmission Date: 20071010
  Serious: Yes (Hospitalization)
  Sender: FDA-Public Use
  Company Number: FRWYE942522DEC06

PATIENT
  Sex: Male
  Weight: 65 kg

DRUGS (3)
  1. ENBREL [Suspect]
     Indication: PSORIATIC ARTHROPATHY
     Dosage: 50 MG TOTAL WEEKLY
     Route: 058
     Dates: start: 20041105
  2. ENBREL [Suspect]
     Dosage: 25 MG TOTAL WEEKLY
     Route: 058
     Dates: end: 20061215
  3. NOVATREX [Suspect]
     Indication: PSORIATIC ARTHROPATHY
     Dosage: UNKNOWN
     Route: 048
     Dates: start: 20011126

REACTIONS (2)
  - COLON CANCER [None]
  - CONCOMITANT DISEASE PROGRESSION [None]
